FAERS Safety Report 8843079 (Version 2)
Quarter: 2013Q1

REPORT INFORMATION
  Report Type: Report from Study
  Country: KR (occurrence: KR)
  Receive Date: 20121016
  Receipt Date: 20130121
  Transmission Date: 20140127
  Serious: Yes (Hospitalization)
  Sender: FDA-Public Use
  Company Number: KR-009507513-1207KOR004567

PATIENT
  Age: 10 Year
  Sex: Male
  Weight: 30.45 kg

DRUGS (26)
  1. BLINDED APREPITANT [Suspect]
     Indication: PROPHYLAXIS OF NAUSEA AND VOMITING
     Dosage: UNK UNK, QD
     Route: 048
     Dates: start: 20120529, end: 20120531
  2. BLINDED APREPITANT [Suspect]
     Indication: PROPHYLAXIS OF NAUSEA AND VOMITING
     Dosage: UNK UNK, QD
     Route: 048
     Dates: start: 20120529, end: 20120531
  3. BLINDED DEXAMETHASONE [Suspect]
     Indication: PROPHYLAXIS OF NAUSEA AND VOMITING
     Dosage: UNK UNK, QD
     Route: 048
     Dates: start: 20120529, end: 20120531
  4. BLINDED DEXAMETHASONE [Suspect]
     Indication: PROPHYLAXIS OF NAUSEA AND VOMITING
     Dosage: UNK UNK, QD
     Route: 048
     Dates: start: 20120529, end: 20120531
  5. BLINDED ONDANSETRON [Suspect]
     Indication: PROPHYLAXIS OF NAUSEA AND VOMITING
     Dosage: UNK UNK, QD
     Route: 048
     Dates: start: 20120529, end: 20120531
  6. BLINDED ONDANSETRON HCL [Suspect]
     Indication: PROPHYLAXIS OF NAUSEA AND VOMITING
     Dosage: UNK UNK, QD
     Route: 048
     Dates: start: 20120529, end: 20120531
  7. BLINDED PLACEBO [Suspect]
     Indication: PROPHYLAXIS OF NAUSEA AND VOMITING
     Dosage: UNK UNK, QD
     Route: 048
     Dates: start: 20120529, end: 20120531
  8. BLINDED POST TRIAL THERAPY [Suspect]
     Indication: PROPHYLAXIS OF NAUSEA AND VOMITING
     Dosage: UNK UNK, QD
     Route: 048
     Dates: start: 20120529, end: 20120531
  9. BLINDED PRE TRIAL THERAPY [Suspect]
     Indication: PROPHYLAXIS OF NAUSEA AND VOMITING
     Dosage: UNK UNK, QD
     Route: 048
     Dates: start: 20120529, end: 20120531
  10. ONDANSETRON [Suspect]
     Indication: PROPHYLAXIS OF NAUSEA AND VOMITING
     Dosage: 4.57 MG, QD
     Route: 048
     Dates: start: 20120529, end: 20120531
  11. CYCLOPHOSPHAMIDE [Suspect]
     Indication: CHEMOTHERAPY
     Dosage: 1070 MG, ONCE
     Route: 042
     Dates: start: 20120530, end: 20120531
  12. CISPLATIN [Suspect]
     Indication: CHEMOTHERAPY
     Dosage: 80 MG, ONCE
     Route: 042
     Dates: start: 20120529, end: 20120529
  13. VINCRISTINE SULFATE [Suspect]
     Indication: CHEMOTHERAPY
     Dosage: 1.7 MG, ONCE
     Route: 042
     Dates: start: 20120529, end: 20120529
  14. VINCRISTINE SULFATE [Suspect]
     Dosage: 1.7 MG ONCE
     Route: 042
     Dates: start: 20120605, end: 20120605
  15. DEXAMETHASONE [Concomitant]
     Indication: PROPHYLAXIS OF NAUSEA AND VOMITING
     Dosage: 20 ML, QD
     Route: 042
     Dates: start: 20120529, end: 20120531
  16. BROBAN [Concomitant]
     Indication: COUGH
     Dosage: 5 ML, BID
     Route: 048
     Dates: start: 20120526, end: 20120602
  17. FENOTEROL [Concomitant]
     Indication: COUGH
     Dosage: 2 MG, TID
     Route: 048
     Dates: start: 20120526, end: 20120612
  18. BROMHEXINE HYDROCHLORIDE [Concomitant]
     Indication: PRODUCTIVE COUGH
     Dosage: 6.4 MG, TID
     Route: 048
     Dates: start: 20120526, end: 20120612
  19. AMOXICILLIN [Concomitant]
     Indication: UPPER RESPIRATORY TRACT INFECTION
     Dosage: 300 MG, TID
     Route: 048
     Dates: start: 20120526, end: 20120602
  20. MEQUITAZINE [Concomitant]
     Indication: RHINORRHOEA
     Dosage: 4 MG, TID
     Route: 048
     Dates: start: 20120526, end: 20120612
  21. SEPTRIN [Concomitant]
     Indication: PROPHYLAXIS
     Dosage: 720 MG, BID
     Route: 048
     Dates: start: 20120429
  22. MAGNESIUM SULFATE [Concomitant]
     Indication: PROPHYLAXIS
     Dosage: 10 ML, BID
     Route: 042
     Dates: start: 20120528, end: 20120530
  23. MESNA [Concomitant]
     Indication: PROPHYLAXIS
     Dosage: 360 MG, TID
     Route: 042
     Dates: start: 20120530, end: 20120531
  24. NYSTATIN [Concomitant]
     Indication: INFECTION PROPHYLAXIS
     Dosage: 10 ML, QID
     Route: 061
     Dates: start: 20120531
  25. AMETOX [Concomitant]
     Indication: PROPHYLAXIS
     Dosage: 17 G, ONCE
     Route: 042
     Dates: start: 20120529, end: 20120530
  26. FLUCONAZOLE [Concomitant]
     Indication: INFECTION PROPHYLAXIS
     Dosage: 90 MG, QD
     Route: 048
     Dates: start: 20120605, end: 20120615

REACTIONS (1)
  - Febrile neutropenia [Recovered/Resolved]
